FAERS Safety Report 24530718 (Version 1)
Quarter: 2024Q4

REPORT INFORMATION
  Report Type: Spontaneous
  Country: CN (occurrence: CN)
  Receive Date: 20241021
  Receipt Date: 20241021
  Transmission Date: 20250114
  Serious: Yes (Other)
  Sender: GE HEALTHCARE
  Company Number: CN-GE HEALTHCARE-2024CSU011787

PATIENT
  Age: 1 Month
  Sex: Male

DRUGS (1)
  1. OMNISCAN [Suspect]
     Active Substance: GADODIAMIDE
     Indication: Diagnostic procedure
     Dosage: 0.5 ML, TOTAL DOSE
     Route: 041
     Dates: start: 20240920, end: 20240920

REACTIONS (2)
  - Oxygen saturation decreased [Recovered/Resolved]
  - Hypopnoea [Recovered/Resolved]

NARRATIVE: CASE EVENT DATE: 20240920
